FAERS Safety Report 10076448 (Version 1)
Quarter: 2014Q2

REPORT INFORMATION
  Report Type: Report from Study
  Country: CA (occurrence: CA)
  Receive Date: 20140414
  Receipt Date: 20140414
  Transmission Date: 20141212
  Serious: No
  Sender: FDA-Public Use
  Company Number: CA-JNJFOC-20140406391

PATIENT
  Age: 70 Year
  Sex: Female
  Weight: 70.8 kg

DRUGS (2)
  1. REMICADE [Suspect]
     Indication: COLITIS ULCERATIVE
     Route: 042
     Dates: start: 20121206
  2. MEZAVANT [Concomitant]
     Route: 065

REACTIONS (1)
  - Lower respiratory tract inflammation [Recovered/Resolved]
